FAERS Safety Report 6145711-5 (Version None)
Quarter: 2009Q2

REPORT INFORMATION
  Report Type: 
  Country: None (occurrence: None)
  Receive Date: 20090403
  Receipt Date: 20090319
  Transmission Date: 20091009
  Serious: Yes (Hospitalization)
  Sender: FDA-Public Use
  Company Number: GXKR2009FR03457

PATIENT
  Age: 39 Year
  Sex: Female

DRUGS (1)
  1. SIMVASTATIN [Suspect]
     Indication: WEIGHT CONTROL
     Dosage: 3 DF, 5 DF

REACTIONS (14)
  - COMPARTMENT SYNDROME [None]
  - EMBOLISM [None]
  - HAEMODIALYSIS [None]
  - HEPATIC FAILURE [None]
  - INTENTIONAL DRUG MISUSE [None]
  - LIVER INJURY [None]
  - MALAISE [None]
  - MONOPLEGIA [None]
  - MUSCLE NECROSIS [None]
  - PERIPHERAL ISCHAEMIA [None]
  - PULSE ABSENT [None]
  - RENAL FAILURE ACUTE [None]
  - RHABDOMYOLYSIS [None]
  - TACHYCARDIA [None]
